FAERS Safety Report 10029998 (Version 2)
Quarter: 2014Q1

REPORT INFORMATION
  Report Type: Spontaneous
  Country: US (occurrence: US)
  Receive Date: 20140323
  Receipt Date: 20140323
  Transmission Date: 20141002
  Serious: No
  Sender: FDA-Public Use
  Company Number: US-ALLERGAN-1305533US

PATIENT
  Age: 24 Year
  Sex: Male

DRUGS (5)
  1. LATISSE 0.03% [Suspect]
     Indication: ALOPECIA AREATA
     Dosage: 2 GTT, QHS
     Route: 061
  2. LATISSE 0.03% [Suspect]
     Dosage: 2 GTT, QHS
     Route: 061
  3. LATISSE 0.03% [Suspect]
     Dosage: 2 GTT, QHS
     Route: 061
  4. CORITSONE SHOTS [Concomitant]
     Indication: ALOPECIA AREATA
     Dosage: UNK
  5. VITAMINS NOS [Concomitant]
     Indication: VITAMIN SUPPLEMENTATION
     Dosage: UNK

REACTIONS (2)
  - Therapeutic response decreased [Unknown]
  - Drug ineffective [Unknown]
